FAERS Safety Report 4799943-9 (Version None)
Quarter: 2005Q4

REPORT INFORMATION
  Report Type: 
  Country: None (occurrence: None)
  Receive Date: 20051017
  Receipt Date: 20051007
  Transmission Date: 20060501
  Serious: Yes (Hospitalization, Other)
  Sender: FDA-Public Use
  Company Number: US-BRISTOL-MYERS SQUIBB COMPANY-13139159

PATIENT
  Age: 63 Year
  Sex: Female

DRUGS (4)
  1. ERBITUX [Suspect]
     Dates: start: 20050908, end: 20050908
  2. PARAPLATIN [Concomitant]
  3. OXALIPLATIN [Concomitant]
  4. FLUOROURACIL [Concomitant]

REACTIONS (6)
  - DIARRHOEA [None]
  - DYSPNOEA [None]
  - FATIGUE [None]
  - HYPOKALAEMIA [None]
  - HYPOMAGNESAEMIA [None]
  - PALPITATIONS [None]
